FAERS Safety Report 9217774 (Version 1)
Quarter: 2013Q2

REPORT INFORMATION
  Report Type: Spontaneous
  Country: FR (occurrence: FR)
  Receive Date: 20130408
  Receipt Date: 20130408
  Transmission Date: 20140414
  Serious: Yes (Hospitalization)
  Sender: FDA-Public Use
  Company Number: FR-B.I. PHARMACEUTICALS,INC./RIDGEFIELD-2013-FF-01055FF

PATIENT
  Age: 73 Year
  Sex: Female

DRUGS (3)
  1. PRADAXA [Suspect]
     Indication: THROMBOSIS PROPHYLAXIS
     Dosage: 220 MG
     Route: 048
     Dates: start: 20130222, end: 20130305
  2. PRADAXA [Suspect]
     Indication: KNEE ARTHROPLASTY
  3. SINTROM [Suspect]
     Indication: DEEP VEIN THROMBOSIS
     Route: 048

REACTIONS (1)
  - International normalised ratio increased [Recovered/Resolved]
